FAERS Safety Report 15660058 (Version 1)
Quarter: 2018Q4

REPORT INFORMATION
  Report Type: Spontaneous
  Country: FR (occurrence: FR)
  Receive Date: 20181127
  Receipt Date: 20181127
  Transmission Date: 20190205
  Serious: Yes (Other)
  Sender: FDA-Public Use
  Company Number: FR-AUROBINDO-AUR-APL-2018-057556

PATIENT
  Age: 69 Year
  Sex: Female

DRUGS (4)
  1. ALPRAZOLAM ARROW TABLETS 0.5MG [Suspect]
     Active Substance: ALPRAZOLAM
     Indication: MAJOR DEPRESSION
     Dosage: 1.5 MILLIGRAM, ONCE A DAY
     Route: 048
     Dates: start: 20181007
  2. MIRTAZAPINE FILM-COATED TABLET 15 MG [Suspect]
     Active Substance: MIRTAZAPINE
     Indication: MAJOR DEPRESSION
     Dosage: 30 MILLIGRAM, ONCE A DAY
     Route: 048
     Dates: start: 20181007
  3. LORMETAZEPAM ARROW 2 MG, TABLET [Suspect]
     Active Substance: LORMETAZEPAM
     Indication: MAJOR DEPRESSION
     Dosage: 2 MILLIGRAM, ONCE A DAY
     Route: 048
     Dates: start: 20181007
  4. RISPERIDONE MYLAN [Suspect]
     Active Substance: RISPERIDONE
     Indication: MAJOR DEPRESSION
     Dosage: 2 MG / DAY THEN 4MG / DAY FROM 15/10/2018
     Route: 048
     Dates: start: 20181007, end: 20181019

REACTIONS (1)
  - Neuroleptic malignant syndrome [Recovered/Resolved]

NARRATIVE: CASE EVENT DATE: 20181019
